FAERS Safety Report 6387208-3 (Version None)
Quarter: 2009Q4

REPORT INFORMATION
  Report Type: 
  Country: None (occurrence: None)
  Receive Date: 20091002
  Receipt Date: 20090924
  Transmission Date: 20100525
  Serious: Yes (Hospitalization)
  Sender: FDA-Public Use
  Company Number: JP-B.I. PHARMACEUTICALS,INC./RIDGEFIELD-2006-BP-08526NB

PATIENT
  Sex: Male

DRUGS (8)
  1. VIRAMUNE [Suspect]
     Indication: HIV INFECTION
     Dosage: 200 MG
     Route: 048
     Dates: start: 20000926
  2. EPIVIR [Concomitant]
     Indication: HIV INFECTION
     Dosage: 300 MG
     Route: 048
     Dates: start: 20000926, end: 20060822
  3. ZERIT [Concomitant]
     Indication: HIV INFECTION
     Dosage: 80 MG
     Route: 048
     Dates: start: 20020405, end: 20050516
  4. RETROVIR [Concomitant]
     Indication: HIV INFECTION
     Dosage: 400 MG
     Route: 048
     Dates: start: 20000926, end: 20060822
  5. EPZICOM [Concomitant]
     Indication: HIV INFECTION
     Dosage: 1 DF
     Route: 048
     Dates: start: 20060823
  6. RENIVACE [Concomitant]
     Indication: HYPERTENSION
     Dosage: 5 MG
     Route: 048
     Dates: start: 20000512
  7. GASMOTIN [Concomitant]
     Indication: GASTRIC CANCER
     Dosage: 15 MG
     Route: 048
     Dates: start: 20030520
  8. MAGNESIUM OXIDE [Concomitant]
     Indication: GASTRIC CANCER
     Dosage: 1.5 MG
     Route: 048
     Dates: start: 20030520

REACTIONS (1)
  - DEPRESSION [None]
